FAERS Safety Report 24973280 (Version 2)
Quarter: 2025Q1

REPORT INFORMATION
  Report Type: Report from Study
  Country: US (occurrence: US)
  Receive Date: 20250216
  Receipt Date: 20250221
  Transmission Date: 20250408
  Serious: Yes (Other)
  Sender: ABBVIE
  Company Number: US-ABBVIE-6135992

PATIENT
  Sex: Female

DRUGS (2)
  1. SKYRIZI [Suspect]
     Active Substance: RISANKIZUMAB-RZAA
     Indication: Product used for unknown indication
     Route: 058
     Dates: start: 202401, end: 202401
  2. SKYRIZI [Suspect]
     Active Substance: RISANKIZUMAB-RZAA
     Route: 058
     Dates: start: 202404

REACTIONS (5)
  - Stricturoplasty [Recovered/Resolved]
  - Malabsorption [Unknown]
  - Onychoclasis [Not Recovered/Not Resolved]
  - Post procedural complication [Unknown]
  - Arthralgia [Unknown]

NARRATIVE: CASE EVENT DATE: 20240228
